FAERS Safety Report 8842327 (Version 2)
Quarter: 2015Q2

REPORT INFORMATION
  Report Type: Report from Study
  Country: US (occurrence: US)
  Receive Date: 20121016
  Receipt Date: 20150618
  Transmission Date: 20150821
  Serious: Yes (Death)
  Sender: FDA-Public Use
  Company Number: US-ROCHE-1135754

PATIENT
  Sex: Male

DRUGS (4)
  1. XELODA [Suspect]
     Active Substance: CAPECITABINE
     Dosage: TAKE (500 MG 1 TABLET 2 TIMES A DAY) AND (150 MG 2 TABLET 2 TIMES A DAY) FOR 2 WEEKS ON AND 1 WEEK O
     Route: 048
  2. SANDOSTATIN [Concomitant]
     Active Substance: OCTREOTIDE ACETATE
  3. XELODA [Suspect]
     Active Substance: CAPECITABINE
     Dosage: TAKE (500 MG 2 TABLET IN MORNING AND 1 IN EVENING) AND (150 MG 1 TABLET IN MORNING) FOR 2 WEEKS ON A
     Route: 048
  4. XELODA [Suspect]
     Active Substance: CAPECITABINE
     Indication: SMALL INTESTINE CARCINOMA
     Dosage: TAKE 500 MG (2 TABLETS 2 TIMES A DAY) FOR 2 WEEKS ON AND 1 WEEK OFF
     Route: 048

REACTIONS (2)
  - Death [Fatal]
  - Off label use [Unknown]
